FAERS Safety Report 16158235 (Version 1)
Quarter: 2019Q2

REPORT INFORMATION
  Report Type: Report from Study
  Country: IT (occurrence: IT)
  Receive Date: 20190404
  Receipt Date: 20190404
  Transmission Date: 20190711
  Serious: Yes (Other)
  Sender: FDA-Public Use
  Company Number: IT-PFIZER INC-2019141419

PATIENT
  Age: 46 Year
  Sex: Female

DRUGS (3)
  1. SERTRALINE HCL [Suspect]
     Active Substance: SERTRALINE HYDROCHLORIDE
     Dosage: 2.25 G, TOTAL
     Route: 048
     Dates: start: 20190219, end: 20190219
  2. WELLBUTRIN [Suspect]
     Active Substance: BUPROPION HYDROCHLORIDE
     Dosage: 60 DF, TOTAL
     Route: 048
     Dates: start: 20190219, end: 20190219
  3. TACHIPIRINA [Suspect]
     Active Substance: ACETAMINOPHEN
     Dosage: 20 DF, TOTAL
     Route: 048
     Dates: start: 20190219, end: 20190219

REACTIONS (4)
  - Sopor [Recovering/Resolving]
  - Vomiting [Recovering/Resolving]
  - Drug abuse [Recovering/Resolving]
  - Overdose [Recovered/Resolved]

NARRATIVE: CASE EVENT DATE: 20190219
